FAERS Safety Report 4955091-6 (Version None)
Quarter: 2006Q1

REPORT INFORMATION
  Report Type: 
  Country: None (occurrence: None)
  Receive Date: 20060322
  Receipt Date: 20060301
  Transmission Date: 20060701
  Serious: Yes (Other)
  Sender: FDA-Public Use
  Company Number: US200603000447

PATIENT
  Age: 84 Year
  Sex: Female

DRUGS (2)
  1. ZYPREXA [Suspect]
     Dosage: SEE IMAGE
  2. ARICEPT /JPN/ (DONEPEZIL HYDROCHLORIDE) [Concomitant]

REACTIONS (3)
  - MUTISM [None]
  - PATELLA FRACTURE [None]
  - WHEELCHAIR USER [None]
